FAERS Safety Report 25823619 (Version 3)
Quarter: 2025Q4

REPORT INFORMATION
  Report Type: Spontaneous
  Country: EU (occurrence: EU)
  Receive Date: 20250919
  Receipt Date: 20251105
  Transmission Date: 20260118
  Serious: Yes (Other)
  Sender: AUROBINDO
  Company Number: EU-EMA-DD-20250904-7482827-184815

PATIENT
  Age: 40 Year
  Sex: Female

DRUGS (5)
  1. MYCOPHENOLATE MOFETIL [Suspect]
     Active Substance: MYCOPHENOLATE MOFETIL
     Indication: Immunosuppressant drug therapy
     Dosage: 1000 MILLIGRAM, ONCE A DAY
     Route: 065
  2. MYCOPHENOLATE MOFETIL [Suspect]
     Active Substance: MYCOPHENOLATE MOFETIL
     Indication: Renal transplant
  3. BELATACEPT [Suspect]
     Active Substance: BELATACEPT
     Indication: Renal transplant
     Dosage: 5 MILLIGRAM/KILOGRAM (DOSE WAS ADAPTED EACH MONTH TO HER WEIGHT)
     Route: 065
  4. RITUXIMAB [Concomitant]
     Active Substance: RITUXIMAB
     Indication: Product used for unknown indication
     Dosage: UNK (375 MG/KG/M?/WEEK FOR 2 WEEKS)
     Route: 065
  5. Immunoglobulin [Concomitant]
     Indication: Product used for unknown indication
     Dosage: 2 GRAM PER KILOGRAM
     Route: 042

REACTIONS (2)
  - Kidney transplant rejection [Unknown]
  - Transplant rejection [Recovered/Resolved]
